FAERS Safety Report 24713019 (Version 1)
Quarter: 2024Q4

REPORT INFORMATION
  Report Type: Spontaneous
  Country: US (occurrence: None)
  Receive Date: 20241209
  Receipt Date: 20241209
  Transmission Date: 20250114
  Serious: Yes (Hospitalization)
  Sender: Public
  Company Number: None

PATIENT
  Age: 46 Year
  Sex: Female

DRUGS (1)
  1. COSENTYX [Suspect]
     Active Substance: SECUKINUMAB
     Indication: Hidradenitis
     Dosage: 300MG AT WEEKS 0, 1, 2, 3 , AND 4, THEN EVERY 4 WEEKS?

REACTIONS (4)
  - Joint swelling [None]
  - Arthralgia [None]
  - Nonspecific reaction [None]
  - Therapy interrupted [None]
